FAERS Safety Report 11806035 (Version 4)
Quarter: 2016Q4

REPORT INFORMATION
  Report Type: Report from Study
  Country: JP (occurrence: JP)
  Receive Date: 20151207
  Receipt Date: 20161208
  Transmission Date: 20170206
  Serious: Yes (Other)
  Sender: FDA-Public Use
  Company Number: PHJP2015JP021541

PATIENT
  Age: 8 Year
  Sex: Female
  Weight: 25.8 kg

DRUGS (43)
  1. ACZ885 [Suspect]
     Active Substance: CANAKINUMAB
     Dosage: 150 MG, UNK
     Route: 058
     Dates: start: 20150123
  2. PREDNISOLONE. [Suspect]
     Active Substance: PREDNISOLONE
     Dosage: 17 MG, UNK
     Route: 048
     Dates: start: 20150425
  3. MORPHINE [Concomitant]
     Active Substance: MORPHINE
     Indication: MUCKLE-WELLS SYNDROME
     Dosage: 50 MG, UNK
     Route: 048
  4. ZYRTEC [Concomitant]
     Active Substance: CETIRIZINE HYDROCHLORIDE
     Indication: MUCKLE-WELLS SYNDROME
     Dosage: 3 MG, UNK
     Route: 048
  5. HYALEIN [Concomitant]
     Active Substance: HYALURONATE SODIUM
     Indication: MUCKLE-WELLS SYNDROME
     Dosage: UNK
     Route: 047
  6. ACZ885 [Suspect]
     Active Substance: CANAKINUMAB
     Dosage: 150 MG, UNK
     Route: 058
     Dates: start: 20151211
  7. ACZ885 [Suspect]
     Active Substance: CANAKINUMAB
     Dosage: 150 MG, UNK
     Route: 058
     Dates: start: 20150613
  8. ACZ885 [Suspect]
     Active Substance: CANAKINUMAB
     Dosage: 150 MG, UNK
     Route: 058
     Dates: start: 20160819, end: 20160819
  9. ACZ885 [Suspect]
     Active Substance: CANAKINUMAB
     Dosage: 150 MG, UNK
     Route: 058
     Dates: start: 20161021
  10. BRUFEN ^ABBOTT^ [Concomitant]
     Active Substance: IBUPROFEN
     Indication: MUCKLE-WELLS SYNDROME
     Dosage: 800 MG, UNK
     Route: 048
  11. METHOTREXATE. [Concomitant]
     Active Substance: METHOTREXATE
     Indication: MUCKLE-WELLS SYNDROME
     Dosage: 15 MG, UNK
     Route: 048
     Dates: end: 20150409
  12. RIPASUDIL HYDROCHLORIDE DIHYDRATE [Concomitant]
     Active Substance: RIPASUDIL HYDROCHLORIDE DIHYDRATE
     Indication: GLAUCOMA
     Dosage: UNK
     Route: 047
  13. ACZ885 [Suspect]
     Active Substance: CANAKINUMAB
     Dosage: 150 MG, UNK
     Route: 058
     Dates: start: 20150918, end: 20150918
  14. CALONAL [Concomitant]
     Active Substance: ACETAMINOPHEN
     Indication: MUCKLE-WELLS SYNDROME
     Dosage: 1400 MG, UNK
     Route: 048
  15. METHOTREXATE. [Concomitant]
     Active Substance: METHOTREXATE
     Dosage: 7 MG, UNK
     Route: 048
     Dates: start: 20150410
  16. ACZ885 [Suspect]
     Active Substance: CANAKINUMAB
     Dosage: 150 MG, UNK
     Route: 058
     Dates: start: 20150731
  17. PREDNISOLONE. [Suspect]
     Active Substance: PREDNISOLONE
     Dosage: 30 MG, UNK
     Route: 048
     Dates: start: 20150113, end: 20150424
  18. MUCOSTA [Concomitant]
     Active Substance: REBAMIPIDE
     Indication: PROPHYLAXIS
     Dosage: 100 MG, UNK
     Route: 048
  19. HEAVY MAGNESIUM OXIDE [Concomitant]
     Indication: PROPHYLAXIS
     Dosage: 0.7 G, UNK
     Route: 048
  20. GLUCONSAN K [Concomitant]
     Indication: PROPHYLAXIS
     Dosage: 0.25 G, UNK
     Route: 048
     Dates: start: 20150107, end: 20150507
  21. TARIVID OPHTHALMIC [Concomitant]
     Active Substance: OFLOXACIN
     Indication: MUCKLE-WELLS SYNDROME
     Dosage: UNK
     Route: 047
  22. ACZ885 [Suspect]
     Active Substance: CANAKINUMAB
     Dosage: 150 MG, UNK
     Route: 058
     Dates: start: 20150605
  23. DIAMOX SEQUELS [Concomitant]
     Active Substance: ACETAZOLAMIDE
     Indication: GLAUCOMA
     Dosage: 375 MG, UNK
     Route: 048
     Dates: start: 20150107, end: 20150409
  24. DIAMOX SEQUELS [Concomitant]
     Active Substance: ACETAZOLAMIDE
     Dosage: 250 MG, UNK
     Route: 048
     Dates: start: 20150410, end: 20150507
  25. TOCILIZUMAB [Concomitant]
     Active Substance: TOCILIZUMAB
     Indication: MUCKLE-WELLS SYNDROME
     Dosage: UNK
     Route: 065
     Dates: start: 20130122, end: 20140909
  26. DAINATEC [Concomitant]
     Indication: GLAUCOMA
     Dosage: UNK
     Route: 047
  27. REBAMIPIDE [Concomitant]
     Active Substance: REBAMIPIDE
     Indication: PROPHYLAXIS
     Dosage: 100 MG, UNK
     Route: 048
  28. IBUPROFEN. [Concomitant]
     Active Substance: IBUPROFEN
     Indication: MUCKLE-WELLS SYNDROME
     Dosage: 800 MG, UNK
     Route: 048
  29. ACZ885 [Suspect]
     Active Substance: CANAKINUMAB
     Dosage: 150 MG, UNK
     Route: 058
     Dates: start: 20150226
  30. ACZ885 [Suspect]
     Active Substance: CANAKINUMAB
     Dosage: 150 MG, UNK
     Route: 058
     Dates: start: 20150424
  31. NASEA [Concomitant]
     Active Substance: RAMOSETRON HYDROCHLORIDE
     Indication: PROPHYLAXIS
     Dosage: 1 DF, UNK
     Route: 048
  32. COSOPT [Concomitant]
     Active Substance: DORZOLAMIDE HYDROCHLORIDE\TIMOLOL MALEATE
     Indication: GLAUCOMA
     Dosage: UNK
     Route: 047
  33. ALPHAGAN P [Concomitant]
     Active Substance: BRIMONIDINE TARTRATE
     Indication: GLAUCOMA
     Dosage: UNK
     Route: 047
  34. ACZ885 [Suspect]
     Active Substance: CANAKINUMAB
     Indication: MUCKLE-WELLS SYNDROME
     Dosage: 50 MG, UNK
     Route: 058
     Dates: start: 20141010
  35. ACZ885 [Suspect]
     Active Substance: CANAKINUMAB
     Dosage: 100 MG, UNK
     Route: 058
     Dates: start: 20141205
  36. ACZ885 [Suspect]
     Active Substance: CANAKINUMAB
     Dosage: 150 MG, UNK
     Route: 058
     Dates: start: 20160701
  37. PREDNISOLONE. [Suspect]
     Active Substance: PREDNISOLONE
     Indication: MUCKLE-WELLS SYNDROME
     Dosage: 30 MG, UNK
     Route: 048
     Dates: end: 20150108
  38. PREDNISOLONE. [Suspect]
     Active Substance: PREDNISOLONE
     Dosage: 17 MG, UNK
     Route: 048
     Dates: start: 20150109, end: 20150112
  39. INFLIXIMAB [Concomitant]
     Active Substance: INFLIXIMAB
     Indication: MUCKLE-WELLS SYNDROME
     Dosage: UNK
     Route: 065
     Dates: start: 20110315, end: 20121222
  40. ACZ885 [Suspect]
     Active Substance: CANAKINUMAB
     Dosage: 150 MG, UNK
     Route: 058
     Dates: start: 20160205
  41. ACZ885 [Suspect]
     Active Substance: CANAKINUMAB
     Dosage: 150 MG, UNK
     Route: 058
     Dates: start: 20160325
  42. BAKTAR [Concomitant]
     Active Substance: SULFAMETHOXAZOLE\TRIMETHOPRIM
     Indication: PROPHYLAXIS
     Dosage: 1 DF, UNK
     Route: 048
  43. TRAVATAN Z [Concomitant]
     Active Substance: TRAVOPROST
     Indication: GLAUCOMA
     Dosage: UNK
     Route: 047

REACTIONS (9)
  - Subcutaneous abscess [Recovered/Resolved]
  - Bronchitis [Recovered/Resolved]
  - Swelling face [Unknown]
  - Subcutaneous abscess [Recovered/Resolved]
  - Perichondritis [Not Recovered/Not Resolved]
  - Pericoronitis [Recovered/Resolved]
  - Perichondritis [Recovered/Resolved]
  - Neoplasm of orbit [Recovering/Resolving]
  - Pericoronitis [Recovered/Resolved]

NARRATIVE: CASE EVENT DATE: 20150522
